FAERS Safety Report 5808612-5 (Version None)
Quarter: 2008Q3

REPORT INFORMATION
  Report Type: 
  Country: None (occurrence: None)
  Receive Date: 20080709
  Receipt Date: 20080709
  Transmission Date: 20090109
  Serious: No
  Sender: FDA-Public Use
  Company Number: None

PATIENT
  Age: 65 Year
  Sex: Male
  Weight: 98.88 kg

DRUGS (1)
  1. DOCETAXEL [Suspect]
     Indication: LUNG CARCINOMA CELL TYPE UNSPECIFIED STAGE IV
     Dosage: 165 MG OTHER IV
     Route: 042
     Dates: start: 20080425, end: 20080530

REACTIONS (2)
  - OEDEMA PERIPHERAL [None]
  - SKIN EXFOLIATION [None]
